FAERS Safety Report 5471837-5 (Version None)
Quarter: 2007Q3

REPORT INFORMATION
  Report Type: 
  Country: None (occurrence: None)
  Receive Date: 20070928
  Receipt Date: 20070619
  Transmission Date: 20080115
  Serious: No
  Sender: FDA-Public Use
  Company Number: US-BRISTOL-MYERS SQUIBB COMPANY-13819594

PATIENT
  Age: 62 Year
  Sex: Female
  Weight: 95 kg

DRUGS (4)
  1. DEFINITY [Suspect]
     Route: 042
     Dates: start: 20070614, end: 20070614
  2. COUMADIN [Concomitant]
  3. CALCIUM CHANNEL BLOCKER [Concomitant]
  4. CHOLESTEROL MEDICATION [Concomitant]

REACTIONS (2)
  - BACK PAIN [None]
  - CHEST PAIN [None]
